FAERS Safety Report 20724558 (Version 5)
Quarter: 2022Q4

REPORT INFORMATION
  Report Type: Spontaneous
  Country: JP (occurrence: JP)
  Receive Date: 20220419
  Receipt Date: 20221123
  Transmission Date: 20230112
  Serious: Yes (Hospitalization, Other)
  Sender: FDA-Public Use
  Company Number: JP-PFIZER INC-202200584892

PATIENT
  Age: 49 Year
  Sex: Female
  Weight: 51.25 kg

DRUGS (4)
  1. XELJANZ [Suspect]
     Active Substance: TOFACITINIB CITRATE
     Indication: Colitis ulcerative
     Dosage: 10 MG, 2X/DAY
     Route: 048
     Dates: start: 20200107, end: 202202
  2. LIALDA [Concomitant]
     Active Substance: MESALAMINE
     Indication: Colitis ulcerative
     Dosage: 4800 MG, DAILY
     Route: 048
     Dates: start: 20190313
  3. BIO-THREE [Concomitant]
     Active Substance: HERBALS
     Indication: Colitis ulcerative
     Dosage: 1 DF, 3X/DAY
     Route: 048
     Dates: start: 20190718, end: 20200128
  4. FAMOTIDINE SAWAI [Concomitant]
     Indication: Colitis ulcerative
     Dosage: 10 MG, 2X/DAY
     Route: 048
     Dates: start: 20151225, end: 20200522

REACTIONS (6)
  - Bartholin^s abscess [Recovering/Resolving]
  - Condition aggravated [Recovering/Resolving]
  - Subcutaneous abscess [Recovered/Resolved]
  - Skin necrosis [Recovering/Resolving]
  - Infection [Unknown]
  - Pyrexia [Unknown]

NARRATIVE: CASE EVENT DATE: 20200201
